FAERS Safety Report 7583689-8 (Version None)
Quarter: 2011Q2

REPORT INFORMATION
  Report Type: 
  Country: None (occurrence: None)
  Receive Date: 20110630
  Receipt Date: 20110228
  Transmission Date: 20111010
  Serious: Yes (Life-Threatening)
  Sender: FDA-Public Use
  Company Number: B0703392A

PATIENT
  Sex: Female
  Weight: 45 kg

DRUGS (19)
  1. DORIPENEM MONOHYDRATE [Suspect]
     Dosage: .75MG PER DAY
     Route: 042
     Dates: start: 20081122, end: 20081201
  2. CIPROFLOXACIN HCL [Suspect]
     Dosage: 600MG PER DAY
     Route: 048
     Dates: start: 20081117, end: 20081123
  3. SANDIMMUNE [Suspect]
     Route: 048
  4. PREDNISOLONE [Concomitant]
     Dates: start: 20081116, end: 20081124
  5. ALKERAN [Suspect]
     Indication: STEM CELL TRANSPLANT
     Dosage: 40MGM2 PER DAY
     Route: 042
     Dates: start: 20081116, end: 20081117
  6. CYCLOSPORINE [Concomitant]
     Indication: IMMUNOSUPPRESSION
     Dosage: 100MG PER DAY
     Route: 065
     Dates: start: 20081120, end: 20081201
  7. GRANISETRON [Concomitant]
     Dosage: 1IUAX PER DAY
     Route: 042
     Dates: start: 20081116, end: 20081119
  8. ZOVIRAX [Suspect]
     Dosage: 1200MG PER DAY
     Route: 048
     Dates: start: 20081116, end: 20081123
  9. POTASSIUM CHLORIDE [Concomitant]
     Dosage: 1IUAX PER DAY
     Route: 042
     Dates: start: 20081117, end: 20081201
  10. METHYLPREDNISOLONE SODIUM SUCCINATE [Suspect]
     Route: 042
  11. METHOTREXATE [Suspect]
     Indication: IMMUNOSUPPRESSION
     Dosage: 15MG PER DAY
     Route: 065
     Dates: start: 20081122, end: 20081127
  12. MINOCYCLINE HYDROCHLORIDE [Suspect]
     Dosage: 200MG PER DAY
     Route: 042
     Dates: start: 20081122, end: 20081201
  13. HALOPERIDOL [Concomitant]
     Dosage: 5MG PER DAY
     Dates: start: 20081116, end: 20081127
  14. DEPAS [Concomitant]
     Dosage: .5MG PER DAY
     Route: 048
     Dates: start: 20081116, end: 20081120
  15. RABEPRAZOLE SODIUM [Concomitant]
     Dosage: 10MG PER DAY
     Route: 048
     Dates: start: 20081116, end: 20081123
  16. FUNGUARD [Suspect]
     Dosage: 150MG PER DAY
     Route: 042
     Dates: start: 20081124, end: 20081201
  17. FLUCONAZOLE [Suspect]
     Dosage: 800MG PER DAY
     Route: 048
     Dates: start: 20081116, end: 20081122
  18. FLUDARA [Suspect]
     Indication: STEM CELL TRANSPLANT
     Dosage: 30MGM2 PER DAY
     Route: 042
     Dates: start: 20081114, end: 20081119
  19. FUROSEMIDE [Suspect]
     Dosage: 20MG PER DAY
     Route: 042
     Dates: start: 20081126, end: 20081201

REACTIONS (6)
  - JAUNDICE [None]
  - PYREXIA [None]
  - HYPERBILIRUBINAEMIA [None]
  - RENAL DISORDER [None]
  - C-REACTIVE PROTEIN INCREASED [None]
  - SEPSIS [None]
